FAERS Safety Report 12224973 (Version 2)
Quarter: 2016Q2

REPORT INFORMATION
  Report Type: Other
  Country: TR (occurrence: TR)
  Receive Date: 20160331
  Receipt Date: 20160401
  Transmission Date: 20160815
  Serious: Yes (Life-Threatening, Other)
  Sender: FDA-Public Use
  Company Number: TR-ORCHID HEALTHCARE-1050018

PATIENT
  Age: 41 Year
  Sex: Female

DRUGS (1)
  1. TERBINAFINE HYDROCHLORIDE. [Suspect]
     Active Substance: TERBINAFINE HYDROCHLORIDE
     Indication: ONYCHOMYCOSIS
     Route: 048

REACTIONS (3)
  - Vaginal haemorrhage [Unknown]
  - Aplastic anaemia [Recovered/Resolved]
  - Hepatic enzyme increased [Unknown]
